FAERS Safety Report 15092731 (Version 1)
Quarter: 2018Q2

REPORT INFORMATION
  Report Type: Report from Study
  Country: US (occurrence: US)
  Receive Date: 20180629
  Receipt Date: 20180629
  Transmission Date: 20180711
  Serious: No
  Sender: FDA-Public Use
  Company Number: PHEH2018US024973

PATIENT
  Sex: Male

DRUGS (1)
  1. COSENTYX [Suspect]
     Active Substance: SECUKINUMAB
     Indication: PRODUCT USED FOR UNKNOWN INDICATION
     Route: 058

REACTIONS (5)
  - Joint swelling [Recovering/Resolving]
  - Musculoskeletal stiffness [Recovered/Resolved]
  - Peripheral swelling [Recovering/Resolving]
  - Skin lesion [Recovered/Resolved]
  - Pain [Recovered/Resolved]
